FAERS Safety Report 25773033 (Version 1)
Quarter: 2025Q3

REPORT INFORMATION
  Report Type: Other
  Country: US (occurrence: US)
  Receive Date: 20250908
  Receipt Date: 20250908
  Transmission Date: 20251021
  Serious: Yes (Death, Hospitalization, Other)
  Sender: ANI
  Company Number: US-ANIPHARMA-030429

PATIENT
  Age: 66 Year
  Sex: Female

DRUGS (6)
  1. CYCLOPHOSPHAMIDE [Suspect]
     Active Substance: CYCLOPHOSPHAMIDE
     Indication: Plasma cell myeloma
  2. TECLISTAMAB [Concomitant]
     Active Substance: TECLISTAMAB
     Indication: Plasma cell myeloma
  3. DEXAMETHASONE [Concomitant]
     Active Substance: DEXAMETHASONE
     Indication: Plasma cell myeloma
  4. ETOPOSIDE [Concomitant]
     Active Substance: ETOPOSIDE
     Indication: Plasma cell myeloma
  5. CISPLATIN [Concomitant]
     Active Substance: CISPLATIN
     Indication: Plasma cell myeloma
  6. TALQUETAMAB [Concomitant]
     Active Substance: TALQUETAMAB
     Indication: Plasma cell myeloma

REACTIONS (2)
  - Progressive multifocal leukoencephalopathy [Fatal]
  - JC virus infection [Fatal]
